FAERS Safety Report 23652860 (Version 2)
Quarter: 2024Q2

REPORT INFORMATION
  Report Type: Spontaneous
  Country: BR (occurrence: BR)
  Receive Date: 20240320
  Receipt Date: 20240501
  Transmission Date: 20240716
  Serious: No
  Sender: FDA-Public Use
  Company Number: BR-TOLMAR, INC.-24BR046791

PATIENT
  Age: 86 Year

DRUGS (4)
  1. ELIGARD [Suspect]
     Active Substance: LEUPROLIDE ACETATE
     Indication: Neoplasm prostate
     Dosage: 45 MILLIGRAM
  2. ELIGARD [Suspect]
     Active Substance: LEUPROLIDE ACETATE
     Dosage: 45 MILLIGRAM
     Dates: start: 20190513
  3. ELIGARD [Suspect]
     Active Substance: LEUPROLIDE ACETATE
     Dosage: 45 MILLIGRAM
  4. DEVICE [Suspect]
     Active Substance: DEVICE
     Indication: Neoplasm prostate
     Dosage: UNK

REACTIONS (5)
  - Wrong technique in product usage process [Unknown]
  - Intercepted product preparation error [Unknown]
  - Syringe issue [Unknown]
  - Device leakage [Unknown]
  - Device connection issue [Unknown]
